FAERS Safety Report 21090884 (Version 1)
Quarter: 2022Q3

REPORT INFORMATION
  Report Type: Spontaneous
  Country: FR (occurrence: FR)
  Receive Date: 20220716
  Receipt Date: 20220716
  Transmission Date: 20221027
  Serious: Yes (Hospitalization)
  Sender: FDA-Public Use
  Company Number: None

PATIENT
  Age: 56 Year
  Sex: Female

DRUGS (4)
  1. LEVOFLOXACIN [Suspect]
     Active Substance: LEVOFLOXACIN
     Indication: Pneumonia pseudomonal
     Dosage: IN PROGRESS , LEVOFLOXACINE,
     Dates: start: 20220602
  2. VORICONAZOLE [Suspect]
     Active Substance: VORICONAZOLE
     Indication: Fungal infection
     Dosage: DURATION : 10 DAYS
     Dates: start: 20220524, end: 20220603
  3. CEFIDEROCOL SULFATE TOSYLATE [Suspect]
     Active Substance: CEFIDEROCOL SULFATE TOSYLATE
     Indication: Pneumonia pseudomonal
     Dosage: IN PROGRESS , CEFIDEROCOL (TOSILATE DE SULFATE DE) , UNIT DOSE : 1000 MG , FREQUENCY TIME : 1 DAYS
     Dates: start: 20220602
  4. CASPOFUNGIN ACETATE [Suspect]
     Active Substance: CASPOFUNGIN ACETATE
     Indication: Fungal infection
     Dosage: ACETATE DE CASPOFUNGINE ((CHAMPIGNON/GLAREA LOZOYENSIS)) , UNIT DOSE : 4 MG/KG , FREQUENCY TIME : 12
     Dates: start: 20220530, end: 20220603

REACTIONS (3)
  - Cholestasis [Recovering/Resolving]
  - Hepatic cytolysis [Recovering/Resolving]
  - Acute kidney injury [Unknown]

NARRATIVE: CASE EVENT DATE: 20220603
